FAERS Safety Report 8840355 (Version 1)
Quarter: 2012Q4

REPORT INFORMATION
  Report Type: Report from Study
  Country: US (occurrence: US)
  Receive Date: 20121015
  Receipt Date: 20121015
  Transmission Date: 20130627
  Serious: Yes (Other)
  Sender: FDA-Public Use
  Company Number: US-ABBOTT-12P-163-0993754-00

PATIENT
  Sex: Female

DRUGS (1)
  1. HUMIRA [Suspect]
     Indication: CROHN^S DISEASE
     Dosage: One time dose
     Route: 058
     Dates: start: 20120916, end: 20120916

REACTIONS (1)
  - Pharyngeal oedema [Recovered/Resolved]
